FAERS Safety Report 9859775 (Version 1)
Quarter: 2014Q1

REPORT INFORMATION
  Report Type: Spontaneous
  Country: US (occurrence: US)
  Receive Date: 20140131
  Receipt Date: 20140131
  Transmission Date: 20141002
  Serious: No
  Sender: FDA-Public Use
  Company Number: US-009507513-1401USA011231

PATIENT
  Sex: Female

DRUGS (1)
  1. IMPLANON [Suspect]
     Indication: CONTRACEPTION
     Dosage: 1 UNK, UNK
     Route: 030

REACTIONS (6)
  - Complication of device removal [Not Recovered/Not Resolved]
  - Weight increased [Not Recovered/Not Resolved]
  - Medical device complication [Not Recovered/Not Resolved]
  - Device deployment issue [Not Recovered/Not Resolved]
  - Incorrect route of drug administration [Unknown]
  - Incorrect drug administration duration [Unknown]
